FAERS Safety Report 10800713 (Version 2)
Quarter: 2015Q1

REPORT INFORMATION
  Report Type: Spontaneous
  Country: US (occurrence: US)
  Receive Date: 20150216
  Receipt Date: 20150316
  Transmission Date: 20150721
  Serious: Yes (Other)
  Sender: FDA-Public Use
  Company Number: ALCN2015US001151

PATIENT
  Age: 59 Year
  Sex: Female

DRUGS (14)
  1. LOTEPREDNOL [Suspect]
     Active Substance: LOTEPREDNOL
     Dosage: 0.5 %, BID
  2. PILOCARPINE HCL [Suspect]
     Active Substance: PILOCARPINE HYDROCHLORIDE
     Dosage: 1 GTT, BID
     Route: 047
  3. BRIMONIDINE TARTRATE W/TIMOLOL MALEATE [Suspect]
     Active Substance: BRIMONIDINE TARTRATE\TIMOLOL MALEATE
     Indication: OPEN ANGLE GLAUCOMA
     Dosage: UNK UNK, BID
     Route: 047
  4. ACETAZOLAMIDE. [Suspect]
     Active Substance: ACETAZOLAMIDE
     Dosage: 250 MG, QD
     Route: 048
  5. LATANOPROST. [Suspect]
     Active Substance: LATANOPROST
     Indication: OPEN ANGLE GLAUCOMA
     Dosage: 1 GTT, QHS
     Route: 047
  6. LOTEPREDNOL [Suspect]
     Active Substance: LOTEPREDNOL
     Dosage: 0.5 %, QD
  7. MOXIFLOXACIN HCL [Suspect]
     Active Substance: MOXIFLOXACIN
     Dosage: UNK UNK, QID
     Route: 047
  8. LATANOPROST. [Suspect]
     Active Substance: LATANOPROST
     Dosage: 1 GTT, QHS
     Route: 047
  9. ACETAZOLAMIDE. [Suspect]
     Active Substance: ACETAZOLAMIDE
     Dosage: 500 MG, BID
     Route: 048
  10. ACETAZOLAMIDE. [Suspect]
     Active Substance: ACETAZOLAMIDE
     Dosage: 500 MG, QD
     Route: 048
  11. ACETAZOLAMIDE. [Suspect]
     Active Substance: ACETAZOLAMIDE
     Dosage: 250 MG, QD
     Route: 048
  12. LOTEPREDNOL [Suspect]
     Active Substance: LOTEPREDNOL
     Dosage: 0.5 %, QID
     Route: 047
  13. LOTEPREDNOL [Suspect]
     Active Substance: LOTEPREDNOL
     Dosage: 0.5 %, TID
  14. ACETAZOLAMIDE. [Suspect]
     Active Substance: ACETAZOLAMIDE
     Dosage: 250 MG, BID
     Route: 048

REACTIONS (5)
  - Drug ineffective [Unknown]
  - Drug administration error [Unknown]
  - Hyphaema [Unknown]
  - Glaucoma [Unknown]
  - Intraocular pressure increased [Unknown]
